FAERS Safety Report 7784409-4 (Version None)
Quarter: 2011Q3

REPORT INFORMATION
  Report Type: 
  Country: None (occurrence: None)
  Receive Date: 20110928
  Receipt Date: 20110923
  Transmission Date: 20111222
  Serious: Yes (Hospitalization)
  Sender: FDA-Public Use
  Company Number: PHHY2011TR85053

PATIENT
  Age: 53 Year
  Sex: Female

DRUGS (8)
  1. CITOL [Concomitant]
     Dosage: UNK UKN, UNK
  2. SYMBICORT [Concomitant]
     Dosage: UNK UKN, UNK
  3. TEOCAP [Concomitant]
     Dosage: UNK UKN, UNK
  4. SEROQUEL [Concomitant]
     Dosage: UNK UKN, UNK
  5. ZOLEDRONOC ACID [Suspect]
     Indication: OSTEOPOROSIS
     Dosage: UNK UKN, UNK
     Route: 042
     Dates: start: 20110401
  6. SPIRIVA [Concomitant]
     Dosage: UNK UKN, UNK
  7. ANAFRANIL [Concomitant]
     Dosage: UNK UKN, UNK
  8. NSAID'S [Concomitant]
     Dosage: UNK UKN, UNK

REACTIONS (2)
  - BLOOD CREATINE INCREASED [None]
  - BLOOD GLUCOSE ABNORMAL [None]
